FAERS Safety Report 11866992 (Version 3)
Quarter: 2016Q1

REPORT INFORMATION
  Report Type: Spontaneous
  Country: PT (occurrence: PT)
  Receive Date: 20151224
  Receipt Date: 20160311
  Transmission Date: 20160526
  Serious: Yes (Disabling)
  Sender: FDA-Public Use
  Company Number: PT-JNJFOC-20151216904

PATIENT
  Age: 46 Year
  Sex: Female
  Weight: 56 kg

DRUGS (4)
  1. HALDOL DECANOATE [Suspect]
     Active Substance: HALOPERIDOL DECANOATE
     Indication: DEPRESSION
     Route: 030
     Dates: start: 20150902
  2. CERAZET [Concomitant]
     Indication: METRORRHAGIA
     Route: 048
     Dates: start: 201507
  3. FERROUS SULFATE W/FOLIC ACID [Concomitant]
     Indication: ANAEMIA
     Route: 048
     Dates: start: 201507, end: 201508
  4. OMEPRAZOLE. [Concomitant]
     Active Substance: OMEPRAZOLE
     Indication: PROPHYLAXIS
     Route: 048
     Dates: start: 201507, end: 201508

REACTIONS (9)
  - Off label use [Unknown]
  - Rash [Not Recovered/Not Resolved]
  - Angular cheilitis [Not Recovered/Not Resolved]
  - Product use issue [Unknown]
  - Coordination abnormal [Not Recovered/Not Resolved]
  - Tremor [Not Recovered/Not Resolved]
  - Fatigue [Not Recovered/Not Resolved]
  - Movement disorder [Not Recovered/Not Resolved]
  - Vision blurred [Not Recovered/Not Resolved]

NARRATIVE: CASE EVENT DATE: 201509
